FAERS Safety Report 10541710 (Version 2)
Quarter: 2014Q4

REPORT INFORMATION
  Report Type: Spontaneous
  Country: US (occurrence: US)
  Receive Date: 20141024
  Receipt Date: 20141024
  Transmission Date: 20150529
  Serious: No
  Sender: FDA-Public Use
  Company Number: US-ALLERGAN-1409308US

PATIENT
  Sex: Female

DRUGS (4)
  1. ALPHAGAN P [Suspect]
     Active Substance: BRIMONIDINE TARTRATE
     Indication: GLAUCOMA
     Dosage: UNK
     Route: 047
  2. LUMIGAN [Concomitant]
     Active Substance: BIMATOPROST
     Dosage: AT NIGHT
  3. ALPHAGAN P [Suspect]
     Active Substance: BRIMONIDINE TARTRATE
     Dosage: UNK
     Route: 047
     Dates: start: 201305
  4. ALPHAGAN P [Suspect]
     Active Substance: BRIMONIDINE TARTRATE
     Dosage: UNK
     Route: 047

REACTIONS (7)
  - Headache [Recovered/Resolved]
  - Eyelid irritation [Recovered/Resolved]
  - Erythema [Recovered/Resolved]
  - Scleral hyperaemia [Recovered/Resolved]
  - Eye pain [Recovered/Resolved]
  - Ocular vascular disorder [Recovered/Resolved]
  - Erythema of eyelid [Unknown]
